FAERS Safety Report 9705694 (Version 2)
Quarter: 2013Q4

REPORT INFORMATION
  Report Type: Spontaneous
  Country: US (occurrence: US)
  Receive Date: 20131122
  Receipt Date: 20131122
  Transmission Date: 20140711
  Serious: No
  Sender: FDA-Public Use
  Company Number: US-GILEAD-2008-0017175

PATIENT
  Age: 72 Year
  Sex: Female

DRUGS (14)
  1. LETAIRIS [Suspect]
     Indication: PULMONARY HYPERTENSION
     Dates: start: 200806, end: 200807
  2. AVALIDE [Concomitant]
  3. ACTOS [Concomitant]
  4. PLAVIX [Concomitant]
  5. POTASSIUM CHLORIDE [Concomitant]
  6. METOPROLOL [Concomitant]
  7. NIFEDINE [Concomitant]
  8. PAXIL [Concomitant]
  9. LORTAB [Concomitant]
  10. XANAX [Concomitant]
  11. LIPITOR [Concomitant]
  12. FUROSEMIDE [Concomitant]
  13. WARFARIN [Concomitant]
  14. HYDROCHLOROTHIAZIDE [Concomitant]

REACTIONS (3)
  - Pulmonary congestion [None]
  - Nausea [None]
  - Dyspnoea [None]
